FAERS Safety Report 16311135 (Version 2)
Quarter: 2019Q3

REPORT INFORMATION
  Report Type: Spontaneous
  Country: FR (occurrence: FR)
  Receive Date: 20190514
  Receipt Date: 20190903
  Transmission Date: 20191004
  Serious: Yes (Death, Other)
  Sender: FDA-Public Use
  Company Number: FR-MYLANLABS-2019M1046464

PATIENT
  Age: 46 Year
  Sex: Female

DRUGS (7)
  1. SUFENTANIL MYLAN [Suspect]
     Active Substance: SUFENTANIL
     Indication: METASTATIC MALIGNANT MELANOMA
     Dosage: 250 ?G/5 ML
     Route: 042
     Dates: start: 201903
  2. METHYLPREDNISOLONE. [Concomitant]
     Active Substance: METHYLPREDNISOLONE
     Indication: METASTATIC MALIGNANT MELANOMA
     Dosage: 240 MILLIGRAM, AM
     Route: 042
  3. SUFENTANIL MYLAN [Suspect]
     Active Substance: SUFENTANIL
     Indication: PALLIATIVE CARE
     Dosage: 125 MICROGRAM, TOTAL
     Route: 041
     Dates: start: 20190309
  4. PARACETAMOL [Concomitant]
     Active Substance: ACETAMINOPHEN
     Indication: METASTATIC MALIGNANT MELANOMA
     Dosage: 1 GRAM, TID (MORNING, NOON AND EVENING)
     Route: 042
  5. LEVETIRACETAM. [Suspect]
     Active Substance: LEVETIRACETAM
     Indication: METASTATIC MALIGNANT MELANOMA
     Dosage: 500 MILLIGRAM, BID
     Route: 042
  6. MORPHINE [Concomitant]
     Active Substance: MORPHINE
     Indication: METASTATIC MALIGNANT MELANOMA
     Dosage: 2 MILLIGRAM, PRN
     Route: 042
  7. ONDANSETRON [Concomitant]
     Active Substance: ONDANSETRON
     Indication: METASTATIC MALIGNANT MELANOMA
     Dosage: 4 MILLIGRAM, PRN
     Route: 042

REACTIONS (7)
  - Oxygen saturation decreased [Fatal]
  - Cyanosis [Fatal]
  - Wrong product administered [Fatal]
  - Coma [Fatal]
  - Tachycardia [Fatal]
  - Bradypnoea [Fatal]
  - Accidental overdose [Fatal]

NARRATIVE: CASE EVENT DATE: 20190309
